FAERS Safety Report 5368423-4 (Version None)
Quarter: 2007Q2

REPORT INFORMATION
  Report Type: 
  Country: None (occurrence: None)
  Receive Date: 20070621
  Receipt Date: 20070621
  Transmission Date: 20071010
  Serious: No
  Sender: FDA-Public Use
  Company Number: None

PATIENT
  Age: 35 Year
  Sex: Male

DRUGS (1)
  1. PEN VK 500MG TEVA [Suspect]
     Indication: DENTAL TREATMENT
     Dosage: 500MG QID PO
     Route: 048
     Dates: start: 20070614, end: 20070618

REACTIONS (2)
  - DIARRHOEA [None]
  - HEADACHE [None]
